FAERS Safety Report 10539954 (Version 1)
Quarter: 2014Q4

REPORT INFORMATION
  Report Type: Spontaneous
  Country: US (occurrence: None)
  Receive Date: 20141022
  Receipt Date: 20141022
  Transmission Date: 20150529
  Serious: Yes (Death)
  Sender: FDA-Public Use
  Company Number: INS201410-000223

PATIENT
  Age: 45 Year
  Sex: Female

DRUGS (1)
  1. SUBSYS [Suspect]
     Active Substance: FENTANYL
     Dosage: EVERY 6 HOURS
     Route: 060

REACTIONS (2)
  - Colon cancer stage IV [None]
  - Colon cancer metastatic [None]

NARRATIVE: CASE EVENT DATE: 20141004
